FAERS Safety Report 6304601-5 (Version None)
Quarter: 2009Q3

REPORT INFORMATION
  Report Type: 
  Country: None (occurrence: None)
  Receive Date: 20090811
  Receipt Date: 20090803
  Transmission Date: 20100115
  Serious: Yes (Other)
  Sender: FDA-Public Use
  Company Number: US-JNJFOC-20090601083

PATIENT
  Age: 84 Year
  Sex: Female
  Weight: 81.65 kg

DRUGS (6)
  1. MOTRIN IB [Suspect]
     Route: 048
  2. MOTRIN IB [Suspect]
     Indication: ARTHRALGIA
     Route: 048
  3. SYNTHROID [Concomitant]
     Indication: HYPOTHYROIDISM
  4. COZAAR [Concomitant]
     Indication: HYPERTENSION
  5. LOPRESSOR [Concomitant]
     Indication: HYPERTENSION
  6. ASPIRIN [Concomitant]
     Indication: CARDIAC DISORDER

REACTIONS (1)
  - RENAL FAILURE ACUTE [None]
